FAERS Safety Report 11036615 (Version 2)
Quarter: 2015Q2

REPORT INFORMATION
  Report Type: Spontaneous
  Country: US (occurrence: US)
  Receive Date: 20150416
  Receipt Date: 20150420
  Transmission Date: 20150821
  Serious: Yes (Death)
  Sender: FDA-Public Use
  Company Number: US-ROCHE-1564028

PATIENT
  Age: 90 Year
  Sex: Female
  Weight: 62.65 kg

DRUGS (2)
  1. LISINOPRIL. [Concomitant]
     Active Substance: LISINOPRIL
     Indication: HYPERTENSION
     Route: 048
     Dates: start: 2004
  2. LUCENTIS [Suspect]
     Active Substance: RANIBIZUMAB
     Indication: AGE-RELATED MACULAR DEGENERATION
     Route: 031
     Dates: start: 20110810, end: 20150127

REACTIONS (1)
  - Cerebral artery embolism [Fatal]

NARRATIVE: CASE EVENT DATE: 20150228
